FAERS Safety Report 19158505 (Version 1)
Quarter: 2021Q2

REPORT INFORMATION
  Report Type: Spontaneous
  Country: US (occurrence: US)
  Receive Date: 20210420
  Receipt Date: 20210420
  Transmission Date: 20210717
  Serious: Yes (Other)
  Sender: FDA-Public Use
  Company Number: US-BIOHAVEN PHARMACEUTICALS-2021BHV00380

PATIENT
  Age: 47 Year
  Sex: Female
  Weight: 77.1 kg

DRUGS (2)
  1. UNSPECIFIED HYPERTENSION MEDICATION [Concomitant]
     Active Substance: UNSPECIFIED INGREDIENT
  2. NURTEC ODT [Suspect]
     Active Substance: RIMEGEPANT SULFATE
     Indication: MIGRAINE
     Dosage: 75 MG, EVERY OTHER DAY
     Route: 060
     Dates: start: 20210316, end: 202103

REACTIONS (3)
  - Headache [Recovered/Resolved]
  - Drug ineffective [Recovered/Resolved]
  - Hypertension [Unknown]

NARRATIVE: CASE EVENT DATE: 202103
